FAERS Safety Report 15651914 (Version 3)
Quarter: 2024Q1

REPORT INFORMATION
  Report Type: Spontaneous
  Country: US (occurrence: US)
  Receive Date: 20181123
  Receipt Date: 20240208
  Transmission Date: 20240410
  Serious: Yes (Other)
  Sender: FDA-Public Use
  Company Number: US-GILEAD-2018-0375815

PATIENT
  Age: 48 Year
  Sex: Male
  Weight: 86.168 kg

DRUGS (42)
  1. VIREAD [Suspect]
     Active Substance: TENOFOVIR DISOPROXIL FUMARATE
     Indication: HIV infection
     Route: 048
  2. TRUVADA [Suspect]
     Active Substance: EMTRICITABINE\TENOFOVIR DISOPROXIL FUMARATE
     Indication: HIV infection
     Dosage: UNK
     Route: 048
     Dates: start: 20070504, end: 20151110
  3. TRUVADA [Suspect]
     Active Substance: EMTRICITABINE\TENOFOVIR DISOPROXIL FUMARATE
     Dosage: UNK
     Route: 048
     Dates: start: 20070504, end: 201506
  4. STRIBILD [Suspect]
     Active Substance: COBICISTAT\ELVITEGRAVIR\EMTRICITABINE\TENOFOVIR DISOPROXIL FUMARATE
     Indication: HIV infection
     Dosage: UNK
     Route: 048
     Dates: start: 20151111, end: 201602
  5. GENVOYA [Concomitant]
     Active Substance: COBICISTAT\ELVITEGRAVIR\EMTRICITABINE\TENOFOVIR ALAFENAMIDE FUMARATE
  6. LISINOPRIL [Concomitant]
     Active Substance: LISINOPRIL
  7. LOVAZA [Concomitant]
     Active Substance: OMEGA-3-ACID ETHYL ESTERS
  8. LEVOTHYROXINE [Concomitant]
     Active Substance: LEVOTHYROXINE\LEVOTHYROXINE SODIUM
     Indication: Hypothyroidism
  9. ISENTRESS [Concomitant]
     Active Substance: RALTEGRAVIR POTASSIUM
  10. NORVIR [Concomitant]
     Active Substance: RITONAVIR
  11. TIVICAY [Concomitant]
     Active Substance: DOLUTEGRAVIR SODIUM
  12. LEXIVA [Concomitant]
     Active Substance: FOSAMPRENAVIR CALCIUM
  13. DOXYCYCLINE [Concomitant]
     Active Substance: DOXYCYCLINE
  14. PREZISTA [Concomitant]
     Active Substance: DARUNAVIR ETHANOLATE
  15. NEXIUM I.V. [Concomitant]
     Active Substance: ESOMEPRAZOLE SODIUM
  16. FLUTICASONE [Concomitant]
     Active Substance: FLUTICASONE
  17. HYDROCODONE BITARTRATE AND ACETAMINOPHEN [Concomitant]
     Active Substance: ACETAMINOPHEN\HYDROCODONE BITARTRATE
  18. ALPRAZOLAM [Concomitant]
     Active Substance: ALPRAZOLAM
  19. LUNESTA [Concomitant]
     Active Substance: ESZOPICLONE
     Indication: Insomnia
  20. PRAVASTATIN [Concomitant]
     Active Substance: PRAVASTATIN
     Indication: Hyperlipidaemia
  21. WARFARIN [Concomitant]
     Active Substance: WARFARIN
     Indication: Atrial fibrillation
  22. DILTIAZEM [Concomitant]
     Active Substance: DILTIAZEM
     Indication: Cardiac failure
  23. SOTALOL [Concomitant]
     Active Substance: SOTALOL
  24. BUSPIRONE [Concomitant]
     Active Substance: BUSPIRONE HYDROCHLORIDE
  25. PROAIR HFA [Concomitant]
     Active Substance: ALBUTEROL SULFATE
     Indication: Asthma
  26. CIALIS [Concomitant]
     Active Substance: TADALAFIL
  27. METOPROLOL [Concomitant]
     Active Substance: METOPROLOL
     Indication: Hypertension
  28. AMOXICILLIN [Concomitant]
     Active Substance: AMOXICILLIN
  29. DOXAZOSIN [Concomitant]
     Active Substance: DOXAZOSIN MESYLATE
  30. DIVALPROEX SODIUM [Concomitant]
     Active Substance: DIVALPROEX SODIUM
  31. LAMOTRIGINE [Concomitant]
     Active Substance: LAMOTRIGINE
     Indication: Bipolar disorder
  32. ATORVASTATIN [Concomitant]
     Active Substance: ATORVASTATIN
  33. OXYCODONE [Concomitant]
     Active Substance: OXYCODONE\OXYCODONE HYDROCHLORIDE
  34. LOSARTAN [Concomitant]
     Active Substance: LOSARTAN
  35. IVERMECTIN [Concomitant]
     Active Substance: IVERMECTIN
  36. ROPINIROLE [Concomitant]
     Active Substance: ROPINIROLE
     Indication: Restless legs syndrome
  37. LEVOCETIRIZINE [Concomitant]
     Active Substance: LEVOCETIRIZINE
  38. GABAPENTIN [Concomitant]
     Active Substance: GABAPENTIN
  39. AMITRIPTYLINE [Concomitant]
     Active Substance: AMITRIPTYLINE
  40. ASPIRIN [Concomitant]
     Active Substance: ASPIRIN
  41. VITAMIN D3 [Concomitant]
     Active Substance: CHOLECALCIFEROL
  42. MIDODRINE [Concomitant]
     Active Substance: MIDODRINE

REACTIONS (13)
  - Acute kidney injury [Not Recovered/Not Resolved]
  - Chronic kidney disease [Not Recovered/Not Resolved]
  - Pain [Unknown]
  - Emotional distress [Unknown]
  - Anxiety [Unknown]
  - Anhedonia [Unknown]
  - Economic problem [Unknown]
  - Glomerular filtration rate abnormal [Not Recovered/Not Resolved]
  - Protein urine present [Not Recovered/Not Resolved]
  - Fatigue [Not Recovered/Not Resolved]
  - Dyspnoea exertional [Not Recovered/Not Resolved]
  - Depression [Not Recovered/Not Resolved]
  - Drug ineffective [Unknown]

NARRATIVE: CASE EVENT DATE: 20130601
